FAERS Safety Report 25846773 (Version 1)
Quarter: 2025Q3

REPORT INFORMATION
  Report Type: Spontaneous
  Country: CA (occurrence: CA)
  Receive Date: 20250925
  Receipt Date: 20250925
  Transmission Date: 20251020
  Serious: Yes (Other)
  Sender: NOVO NORDISK
  Company Number: CA-NOVOPROD-1523518

PATIENT
  Age: 36 Year
  Sex: Female
  Weight: 66 kg

DRUGS (7)
  1. SEMAGLUTIDE [Suspect]
     Active Substance: SEMAGLUTIDE
     Indication: Product used for unknown indication
     Dates: start: 202311
  2. CLOZAPINE [Concomitant]
     Active Substance: CLOZAPINE
     Dates: start: 202010
  3. CLOZAPINE [Concomitant]
     Active Substance: CLOZAPINE
     Dates: start: 202107
  4. CLOZAPINE [Concomitant]
     Active Substance: CLOZAPINE
     Dates: start: 202208
  5. CLOZAPINE [Concomitant]
     Active Substance: CLOZAPINE
  6. CLOZAPINE [Concomitant]
     Active Substance: CLOZAPINE
     Indication: Schizophrenia
     Dates: start: 2019
  7. CLOZAPINE [Concomitant]
     Active Substance: CLOZAPINE
     Dates: start: 202204

REACTIONS (1)
  - Schizophrenia [Unknown]
